FAERS Safety Report 9577537 (Version 1)
Quarter: 2013Q4

REPORT INFORMATION
  Report Type: Spontaneous
  Country: US (occurrence: US)
  Receive Date: 20131001
  Receipt Date: 20131001
  Transmission Date: 20140711
  Serious: No
  Sender: FDA-Public Use
  Company Number: US-AMGEN-USASP2013008242

PATIENT
  Age: 42 Year
  Sex: Female
  Weight: 65.76 kg

DRUGS (12)
  1. ENBREL [Suspect]
     Indication: RHEUMATOID ARTHRITIS
     Dosage: 50 MG, QWK
     Route: 058
  2. PLAQUENIL                          /00072602/ [Concomitant]
     Dosage: 200 MG, UNK
  3. ZYRTEC ALLERGY [Concomitant]
     Dosage: 10 MG, UNK
  4. LODINE [Concomitant]
     Dosage: 200 MG, UNK
  5. METHOTREXATE [Concomitant]
     Dosage: 2.5 MG, UNK
  6. PREDNISONE [Concomitant]
     Dosage: 5 MG, UNK
  7. SYNTHROID [Concomitant]
     Dosage: 200 MUT, UNK
  8. HYDROXYCHLOROQUINE [Concomitant]
     Dosage: 200 MG, UNK
  9. FOLIC ACID [Concomitant]
     Dosage: 1 MG, UNK
  10. PERCOCET                           /00446701/ [Concomitant]
     Dosage: UNK MG, UNK
  11. LORTAB                             /00607101/ [Concomitant]
     Dosage: 2.5-500
  12. D3 [Concomitant]
     Dosage: 2000 UNIT, UNK

REACTIONS (1)
  - Systemic lupus erythematosus rash [Recovered/Resolved]
